FAERS Safety Report 8123639 (Version 3)
Quarter: 2014Q1

REPORT INFORMATION
  Report Type: Spontaneous
  Country: US (occurrence: US)
  Receive Date: 20110907
  Receipt Date: 20140121
  Transmission Date: 20141002
  Serious: Yes (Other)
  Sender: FDA-Public Use
  Company Number: US-BAYER-2011-080849

PATIENT
  Age: 40 Year
  Sex: Female
  Weight: 72.56 kg

DRUGS (4)
  1. YASMIN [Suspect]
     Indication: ORAL CONTRACEPTION
     Dosage: UNK
     Dates: start: 20031004, end: 20091210
  2. OCELLA [Suspect]
     Indication: CONTRACEPTION
     Dosage: UNK
     Dates: start: 20031004, end: 20091210
  3. LOTREL [Concomitant]
     Indication: HYPERTENSION
     Dosage: UNK
     Dates: start: 2001
  4. NASONEX [Concomitant]
     Dosage: UNK
     Dates: start: 20050203

REACTIONS (8)
  - Gallbladder disorder [None]
  - Cholecystitis chronic [None]
  - Injury [None]
  - Pain [None]
  - Anxiety [None]
  - Anhedonia [None]
  - Post cholecystectomy syndrome [None]
  - Gastrointestinal disorder [None]
